FAERS Safety Report 15611740 (Version 1)
Quarter: 2018Q4

REPORT INFORMATION
  Report Type: Spontaneous
  Country: US (occurrence: US)
  Receive Date: 20181113
  Receipt Date: 20181113
  Transmission Date: 20190205
  Serious: Yes (Death)
  Sender: FDA-Public Use
  Company Number: US-RECORDATI RARE DISEASES INC.-US-R13005-18-00269

PATIENT
  Sex: Male

DRUGS (13)
  1. ASPARAGINASE [Suspect]
     Active Substance: ASPARAGINASE
     Indication: ACUTE MYELOID LEUKAEMIA
     Route: 065
  2. BUSULFAN. [Concomitant]
     Active Substance: BUSULFAN
     Indication: PRODUCT USED FOR UNKNOWN INDICATION
     Route: 065
  3. RITUXIMAB. [Concomitant]
     Active Substance: RITUXIMAB
     Indication: LYMPHOPROLIFERATIVE DISORDER
     Route: 065
  4. 6-MERCAPTOPURINE [Concomitant]
     Active Substance: MERCAPTOPURINE
     Indication: ACUTE MYELOID LEUKAEMIA
     Route: 065
  5. CLOFARABINE. [Concomitant]
     Active Substance: CLOFARABINE
     Indication: PRODUCT USED FOR UNKNOWN INDICATION
     Route: 065
  6. ARA-C [Concomitant]
     Active Substance: CYTARABINE
     Indication: ACUTE MYELOID LEUKAEMIA
     Route: 065
  7. GRANULOCYTE COLONY STIMULATING FACTOR [Concomitant]
     Active Substance: GRANULOCYTE COLONY-STIMULATING FACTOR NOS
     Route: 065
  8. DAUNORUBICIN [Concomitant]
     Active Substance: DAUNORUBICIN
     Indication: ACUTE MYELOID LEUKAEMIA
     Route: 065
  9. AZACITIDINE. [Concomitant]
     Active Substance: AZACITIDINE
     Indication: PRODUCT USED FOR UNKNOWN INDICATION
     Route: 065
  10. 6-MERCAPTOPURINE [Concomitant]
     Active Substance: MERCAPTOPURINE
     Indication: ACUTE MYELOID LEUKAEMIA
  11. ETOPOSIDE. [Concomitant]
     Active Substance: ETOPOSIDE
     Route: 065
  12. GRANULOCYTE COLONY STIMULATING FACTOR [Concomitant]
     Active Substance: GRANULOCYTE COLONY-STIMULATING FACTOR NOS
     Indication: INFANTILE GENETIC AGRANULOCYTOSIS
     Route: 065
  13. THIOGUANINE [Concomitant]
     Active Substance: THIOGUANINE
     Indication: PRODUCT USED FOR UNKNOWN INDICATION
     Route: 065

REACTIONS (3)
  - Acute myeloid leukaemia [Fatal]
  - Off label use [Unknown]
  - Therapy partial responder [Unknown]
